FAERS Safety Report 8974211 (Version 2)
Quarter: 2013Q1

REPORT INFORMATION
  Report Type: Spontaneous
  Country: DE (occurrence: None)
  Receive Date: 20121213
  Receipt Date: 20130103
  Transmission Date: 20140127
  Serious: Yes (Hospitalization)
  Sender: FDA-Public Use
  Company Number: ABR_00760_2012

PATIENT
  Sex: Male

DRUGS (3)
  1. ERYTHROMYCIN (ERYTHROMYCIN) [Suspect]
     Indication: BRONCHITIS
     Dosage: (DF)
     Dates: start: 20121116, end: 20121126
  2. SYNAGIS [Suspect]
     Indication: PREMATURE BABY
     Route: 030
     Dates: start: 20121008, end: 20121008
  3. SYNAGIS [Suspect]
     Route: 030
     Dates: start: 20121008, end: 20121008

REACTIONS (1)
  - Bronchitis [None]
